FAERS Safety Report 7669255-4 (Version None)
Quarter: 2011Q3

REPORT INFORMATION
  Report Type: 
  Country: None (occurrence: None)
  Receive Date: 20110808
  Receipt Date: 20110801
  Transmission Date: 20111222
  Serious: Yes (Disabling, Other)
  Sender: FDA-Public Use
  Company Number: PHHY2011US62862

PATIENT
  Sex: Male

DRUGS (1)
  1. STALEVO 100 [Suspect]
     Indication: PARKINSON'S DISEASE
     Dosage: UNK UKN, UNK
     Route: 048
     Dates: start: 20110501, end: 20110622

REACTIONS (5)
  - GAIT DISTURBANCE [None]
  - COMA [None]
  - DROOLING [None]
  - APHASIA [None]
  - HYPOKINESIA [None]
